FAERS Safety Report 15580230 (Version 2)
Quarter: 2018Q4

REPORT INFORMATION
  Report Type: Spontaneous
  Country: GB (occurrence: GB)
  Receive Date: 20181102
  Receipt Date: 20181214
  Transmission Date: 20190205
  Serious: Yes (Life-Threatening, Other)
  Sender: FDA-Public Use
  Company Number: GB-JNJFOC-20181101330

PATIENT
  Age: 36 Year
  Sex: Male

DRUGS (2)
  1. RITALIN [Suspect]
     Active Substance: METHYLPHENIDATE HYDROCHLORIDE
     Indication: PRODUCT USED FOR UNKNOWN INDICATION
     Route: 065
     Dates: start: 1996, end: 20181016
  2. METHYLPHENIDATE HYDROCHLORIDE. [Suspect]
     Active Substance: METHYLPHENIDATE HYDROCHLORIDE
     Indication: PRODUCT USED FOR UNKNOWN INDICATION
     Route: 065
     Dates: start: 20181016

REACTIONS (2)
  - Hepatic function abnormal [Not Recovered/Not Resolved]
  - Non-alcoholic fatty liver [Unknown]

NARRATIVE: CASE EVENT DATE: 20181016
